FAERS Safety Report 14552465 (Version 1)
Quarter: 2018Q1

REPORT INFORMATION
  Report Type: Spontaneous
  Country: US (occurrence: US)
  Receive Date: 20180220
  Receipt Date: 20180220
  Transmission Date: 20180509
  Serious: Yes (Death, Hospitalization, Other)
  Sender: FDA-Public Use
  Company Number: US-AUROBINDO-AUR-APL-2018-005890

PATIENT
  Age: 43 Year
  Sex: Male

DRUGS (6)
  1. DOLUTEGRAVIR [Suspect]
     Active Substance: DOLUTEGRAVIR
     Indication: ANTIRETROVIRAL THERAPY
  2. TENOFOVIR DISOPROXIL FUMARATE. [Suspect]
     Active Substance: TENOFOVIR DISOPROXIL FUMARATE
     Indication: ANTIRETROVIRAL THERAPY
  3. LAMIVUDINE. [Suspect]
     Active Substance: LAMIVUDINE
  4. EMTRICITABINE [Suspect]
     Active Substance: EMTRICITABINE
     Indication: ANTIRETROVIRAL THERAPY
  5. EFAVIRENZ. [Suspect]
     Active Substance: EFAVIRENZ
     Indication: ANTIRETROVIRAL THERAPY
  6. ABACAVIR. [Suspect]
     Active Substance: ABACAVIR
     Indication: ANTIRETROVIRAL THERAPY

REACTIONS (8)
  - Coccidioidomycosis [Fatal]
  - Immune reconstitution inflammatory syndrome [Unknown]
  - Pyrexia [Unknown]
  - Productive cough [Unknown]
  - Cardio-respiratory arrest [Fatal]
  - Night sweats [Unknown]
  - Pneumonia [Unknown]
  - Hypotension [Unknown]

NARRATIVE: CASE EVENT DATE: 2015
